FAERS Safety Report 5492389-X (Version None)
Quarter: 2007Q4

REPORT INFORMATION
  Report Type: 
  Country: None (occurrence: None)
  Receive Date: 20071015
  Receipt Date: 20070815
  Transmission Date: 20080405
  Serious: No
  Sender: FDA-Public Use
  Company Number: 2007SP002856

PATIENT
  Age: 40 Year
  Sex: Male

DRUGS (3)
  1. LUNESTA [Suspect]
     Indication: INSOMNIA
     Dosage: 2 MG;HS;ORAL, 4 MG;HS;ORAL
     Route: 048
     Dates: start: 20060101, end: 20070801
  2. LUNESTA [Suspect]
     Indication: INSOMNIA
     Dosage: 2 MG;HS;ORAL, 4 MG;HS;ORAL
     Route: 048
     Dates: start: 20070801
  3. ALBUTEROL [Concomitant]

REACTIONS (2)
  - ALOPECIA [None]
  - DRUG TOLERANCE [None]
